FAERS Safety Report 16520175 (Version 3)
Quarter: 2020Q1

REPORT INFORMATION
  Report Type: Report from Study
  Country: US (occurrence: US)
  Receive Date: 20190702
  Receipt Date: 20200210
  Transmission Date: 20200409
  Serious: No
  Sender: FDA-Public Use
  Company Number: PHEH2019US027801

PATIENT
  Age: 33 Year
  Sex: Female

DRUGS (2)
  1. CEPHALEXIN. [Concomitant]
     Active Substance: CEPHALEXIN
     Indication: PRODUCT USED FOR UNKNOWN INDICATION
     Route: 065
  2. GILENYA [Suspect]
     Active Substance: FINGOLIMOD HYDROCHLORIDE
     Indication: MULTIPLE SCLEROSIS
     Dosage: 0.5 MG, UNK
     Route: 048
     Dates: end: 201709

REACTIONS (4)
  - Maternal exposure before pregnancy [Unknown]
  - Normal newborn [Unknown]
  - Haemorrhoids [Unknown]
  - Eczema [Not Recovered/Not Resolved]

NARRATIVE: CASE EVENT DATE: 201809
